FAERS Safety Report 13384669 (Version 1)
Quarter: 2017Q1

REPORT INFORMATION
  Report Type: Spontaneous
  Country: US (occurrence: US)
  Receive Date: 20170329
  Receipt Date: 20170329
  Transmission Date: 20170429
  Serious: Yes (Hospitalization, Disabling, Other)
  Sender: FDA-Public Use
  Company Number: US-009507513-1106USA02211

PATIENT
  Sex: Female
  Weight: 72.58 kg

DRUGS (6)
  1. FOSAMAX [Suspect]
     Active Substance: ALENDRONATE SODIUM
     Indication: OSTEOPENIA
     Dosage: 70 MG, QW
     Route: 048
     Dates: start: 200004, end: 200801
  2. FOSAMAX [Suspect]
     Active Substance: ALENDRONATE SODIUM
     Indication: OSTEOPENIA
     Dosage: 10 MG, UNK
     Route: 048
     Dates: start: 20000405, end: 200801
  3. ALENDRONATE SODIUM. [Suspect]
     Active Substance: ALENDRONATE SODIUM
     Indication: OSTEOPENIA
     Dosage: 70 MG, QW
     Route: 048
     Dates: start: 20070519, end: 2009
  4. FOSAMAX PLUS D [Suspect]
     Active Substance: ALENDRONATE SODIUM\CHOLECALCIFEROL
     Indication: OSTEOPENIA
     Dosage: 70 MG, UNK
     Route: 048
     Dates: start: 200004, end: 200507
  5. CALCIUM (UNSPECIFIED) [Concomitant]
     Active Substance: CALCIUM
     Indication: PRODUCT USED FOR UNKNOWN INDICATION
     Dosage: UNK
     Route: 065
     Dates: start: 2000
  6. VITAMIN D [Concomitant]
     Active Substance: CHOLECALCIFEROL
     Indication: PRODUCT USED FOR UNKNOWN INDICATION
     Dosage: UNK
     Route: 065
     Dates: start: 2000

REACTIONS (42)
  - Gait disturbance [Unknown]
  - Type 2 diabetes mellitus [Unknown]
  - Muscular weakness [Unknown]
  - Thyroid disorder [Unknown]
  - Intervertebral disc degeneration [Not Recovered/Not Resolved]
  - Malignant melanoma [Unknown]
  - Lumbar spinal stenosis [Not Recovered/Not Resolved]
  - Sciatica [Unknown]
  - Hyperlipidaemia [Unknown]
  - Infarction [Unknown]
  - Femur fracture [Not Recovered/Not Resolved]
  - Lumbar radiculopathy [Not Recovered/Not Resolved]
  - Palpitations [Unknown]
  - Vitamin D deficiency [Unknown]
  - Mammogram abnormal [Unknown]
  - Femur fracture [Not Recovered/Not Resolved]
  - Blood cholesterol increased [Unknown]
  - Fall [Unknown]
  - Increased tendency to bruise [Unknown]
  - Neuritis [Not Recovered/Not Resolved]
  - Pain in extremity [Unknown]
  - Hypertension [Unknown]
  - Anaemia [Unknown]
  - Hypoaesthesia [Unknown]
  - Neuropathy peripheral [Unknown]
  - Hypertension [Unknown]
  - Diverticulitis [Unknown]
  - Perichondritis [Unknown]
  - Breast mass [Unknown]
  - Blood disorder [Unknown]
  - Spinal cord disorder [Unknown]
  - Intervertebral disc protrusion [Not Recovered/Not Resolved]
  - Fatigue [Unknown]
  - Laceration [Unknown]
  - Device failure [Unknown]
  - Demyelination [Unknown]
  - Paresis [Unknown]
  - Tooth disorder [Unknown]
  - Spondylolisthesis [Not Recovered/Not Resolved]
  - Back pain [Unknown]
  - Breast cyst [Unknown]
  - Osteoporosis [Unknown]

NARRATIVE: CASE EVENT DATE: 20010216
